FAERS Safety Report 7071468-X (Version None)
Quarter: 2010Q4

REPORT INFORMATION
  Report Type: 
  Country: None (occurrence: None)
  Receive Date: 20101029
  Receipt Date: 20090908
  Transmission Date: 20110411
  Serious: No
  Sender: FDA-Public Use
  Company Number: A0806358A

PATIENT
  Age: 73 Year
  Sex: Male

DRUGS (5)
  1. ADVAIR DISKUS 100/50 [Suspect]
     Route: 055
     Dates: start: 20090824
  2. AVODART [Concomitant]
  3. SIMVASTATIN [Concomitant]
  4. QUERCETIN [Concomitant]
  5. VITAMIN D [Concomitant]

REACTIONS (1)
  - MICTURITION URGENCY [None]
